FAERS Safety Report 8274632-7 (Version None)
Quarter: 2012Q2

REPORT INFORMATION
  Report Type: 
  Country: None (occurrence: None)
  Receive Date: 20120411
  Receipt Date: 20120403
  Transmission Date: 20120825
  Serious: Yes (Death)
  Sender: FDA-Public Use
  Company Number: CA-GLAXOSMITHKLINE-A0972054A

PATIENT
  Sex: Female
  Weight: 80 kg

DRUGS (2)
  1. PREDNISONE TAB [Concomitant]
     Indication: IDIOPATHIC THROMBOCYTOPENIC PURPURA
     Dosage: 20MG PER DAY
     Route: 048
  2. PROMACTA [Suspect]
     Indication: IDIOPATHIC THROMBOCYTOPENIC PURPURA
     Dosage: 75MG PER DAY
     Route: 048
     Dates: start: 20120226

REACTIONS (4)
  - DEATH [None]
  - MYOCARDIAL INFARCTION [None]
  - LOSS OF CONSCIOUSNESS [None]
  - MALAISE [None]
